FAERS Safety Report 4772918-1 (Version None)
Quarter: 2005Q3

REPORT INFORMATION
  Report Type: 
  Country: None (occurrence: None)
  Receive Date: 20050916
  Receipt Date: 20050901
  Transmission Date: 20060218
  Serious: Yes (Hospitalization)
  Sender: FDA-Public Use
  Company Number: S05-FRA-03321-01

PATIENT
  Age: 80 Year
  Sex: Female

DRUGS (10)
  1. MEMANTINE HCL [Suspect]
     Dosage: 10 MG QD PO
     Route: 048
     Dates: start: 20040203, end: 20050419
  2. RAMIPRIL [Suspect]
     Dates: end: 20050419
  3. GALENIC /FLUTICASONE/SALMETEROL/ [Concomitant]
  4. EFFERALGAN (PARACEMATOL) [Concomitant]
  5. KARDEGIC (ACETYSALICYLATE LYSINE) [Concomitant]
  6. OMEPRAZOLE [Concomitant]
  7. HEMIGOXINE NAIVELLE (DIGOXIN) [Concomitant]
  8. DIAFUSOE (GLYCERYL TRINITRAE) [Concomitant]
  9. ATARAX [Concomitant]
  10. BRONCHOKOD (CARBOCISTEINE) [Concomitant]

REACTIONS (3)
  - CYTOLYTIC HEPATITIS [None]
  - JOINT INJURY [None]
  - PROTHROMBIN TIME RATIO DECREASED [None]
